FAERS Safety Report 15494584 (Version 1)
Quarter: 2018Q4

REPORT INFORMATION
  Report Type: Spontaneous
  Country: FR (occurrence: FR)
  Receive Date: 20181012
  Receipt Date: 20181012
  Transmission Date: 20190205
  Serious: Yes (Death, Other)
  Sender: FDA-Public Use
  Company Number: FR-BRISTOL-MYERS SQUIBB COMPANY-BMS-2018-091546

PATIENT
  Age: 89 Year
  Sex: Female

DRUGS (1)
  1. COUMADINE [Suspect]
     Active Substance: WARFARIN SODIUM
     Indication: PRODUCT USED FOR UNKNOWN INDICATION
     Dosage: 3 MG, QD
     Route: 048
     Dates: start: 20180511, end: 20180522

REACTIONS (4)
  - Cerebrovascular accident [Fatal]
  - Epistaxis [Fatal]
  - International normalised ratio increased [Fatal]
  - Haematuria [Fatal]

NARRATIVE: CASE EVENT DATE: 20180519
